FAERS Safety Report 18114835 (Version 3)
Quarter: 2020Q3

REPORT INFORMATION
  Report Type: Spontaneous
  Country: US (occurrence: US)
  Receive Date: 20200805
  Receipt Date: 20200923
  Transmission Date: 20201103
  Serious: No
  Sender: FDA-Public Use
  Company Number: US-VERTEX PHARMACEUTICALS-2020-015944

PATIENT
  Age: 7 Year
  Sex: Male

DRUGS (18)
  1. ABILIFY [Concomitant]
     Active Substance: ARIPIPRAZOLE
     Dosage: 5 MG, QD, TABLET
     Route: 048
  2. PULMOZYME [Concomitant]
     Active Substance: DORNASE ALFA
     Indication: RESPIRATORY DISORDER
     Dosage: 2.5 MILLILITER (NEBULIZER), QD, SOLUTION
  3. HYPERSAL [Concomitant]
     Active Substance: SODIUM CHLORIDE
     Indication: RESPIRATORY DISORDER
     Dosage: 4 MILLILITER, BID, NEBULIZER
  4. FLOVENT [Concomitant]
     Active Substance: FLUTICASONE PROPIONATE
     Indication: RESPIRATORY DISORDER
  5. ABILIFY [Concomitant]
     Active Substance: ARIPIPRAZOLE
     Dosage: 10 MG TABLET
  6. FLUARIX QUADRIVALENT [Concomitant]
     Dosage: 0.5 MILLILITER, SINGLE (60 MCG/0.5ML)
     Route: 030
  7. NEXIUM I.V. [Concomitant]
     Active Substance: ESOMEPRAZOLE SODIUM
     Dosage: 2 DOSAGE FORM, QD (DELAYED RELEASE SUSPENSION)
     Route: 048
  8. SULPHAMETHOXAZOLE + TRIMETHOPRIM [Concomitant]
     Active Substance: SULFAMETHOXAZOLE\TRIMETHOPRIM
     Dosage: 13.5 MILLILITER, BID, 200MG/40MG/5ML; 473 ML ORAL SUSPENSION
     Route: 048
  9. VITAMIN E [DL?ALPHA TOCOPHERYL ACETATE] [Concomitant]
     Dosage: 200 INTERNATIONAL UNIT, QD
     Route: 048
  10. RIFAMPIN. [Concomitant]
     Active Substance: RIFAMPIN
     Dosage: 450 MG, QD
  11. SYMDEKO [Suspect]
     Active Substance: IVACAFTOR\TEZACAFTOR
     Indication: CYSTIC FIBROSIS
     Dosage: 50MG TEZACAFTOR/75MG IVACAFTOR AM; 75MG IVACAFTOR PM
     Route: 048
     Dates: start: 20191228, end: 20200721
  12. SYMDEKO [Suspect]
     Active Substance: IVACAFTOR\TEZACAFTOR
     Dosage: 50MG TEZACAFTOR/75MG IVACAFTOR AM; 75MG IVACAFTOR PM
     Route: 048
     Dates: start: 20200821
  13. XOPENEX HFA [Concomitant]
     Active Substance: LEVALBUTEROL TARTRATE
     Indication: RESPIRATORY DISORDER
     Dosage: 2?4 PUFFS EVERY 4 HOURS
  14. XOPENEX HFA [Concomitant]
     Active Substance: LEVALBUTEROL TARTRATE
     Dosage: 1 DOSAGE FORM (PUFF), BID
  15. CALCIUM 600 PLUS VITAMIN D3 [Concomitant]
     Dosage: 1 DOSAGE FORM, QD, 1 TABLET EACH
     Route: 048
  16. CHILDREN^S ALL DAY ALLERGY [Concomitant]
     Dosage: 5 MILLILITER, PRN, SOLUTION
     Route: 048
  17. HIBICLENS [Concomitant]
     Active Substance: CHLORHEXIDINE GLUCONATE
     Dosage: 118 MILLILITER, QD, SOLUTION
     Route: 061
  18. TOBRAMYCIN. [Concomitant]
     Active Substance: TOBRAMYCIN
     Indication: RESPIRATORY DISORDER

REACTIONS (2)
  - Alanine aminotransferase increased [Recovered/Resolved]
  - Aspartate aminotransferase increased [Recovered/Resolved]

NARRATIVE: CASE EVENT DATE: 20200716
